FAERS Safety Report 9492712 (Version 3)
Quarter: 2013Q3

REPORT INFORMATION
  Report Type: Spontaneous
  Country: JP (occurrence: JP)
  Receive Date: 20130830
  Receipt Date: 20130905
  Transmission Date: 20140515
  Serious: Yes (Hospitalization, Other)
  Sender: FDA-Public Use
  Company Number: JP-PFIZER INC-2013096490

PATIENT
  Age: 83 Year
  Sex: Female
  Weight: 42.3 kg

DRUGS (13)
  1. CELECOX [Suspect]
     Indication: CANCER PAIN
     Dosage: 100 MG, 2X/DAY
     Route: 048
     Dates: start: 20121129, end: 20130305
  2. CELECOX [Suspect]
     Dosage: 200 MG, 2X/DAY
     Route: 048
     Dates: start: 20130306, end: 20130321
  3. LYRICA [Suspect]
     Indication: NEURALGIA
     Dosage: 25 MG, 2X/DAY
     Route: 048
     Dates: start: 20130213, end: 20130224
  4. LYRICA [Suspect]
     Indication: CANCER PAIN
     Dosage: 50 MG, 2X/DAY
     Route: 048
     Dates: start: 20130225, end: 20130226
  5. LYRICA [Suspect]
     Dosage: 25 MG AT MORNING AND AT 50 MG AT EVENING/DAY
     Route: 048
     Dates: start: 20130227, end: 20130305
  6. CALONAL [Concomitant]
     Indication: CANCER PAIN
     Dosage: 600 MG, THREE TIMES A DAY
     Route: 048
     Dates: start: 20120806, end: 20121016
  7. CALONAL [Concomitant]
     Indication: CHEST PAIN
     Dosage: 600 MG, FOUR TIMES A DAY
     Route: 048
     Dates: start: 20121017
  8. OXYCONTIN [Concomitant]
     Indication: CANCER PAIN
     Dosage: 5 MG, 2X/DAY
     Route: 048
     Dates: start: 20130206, end: 20130318
  9. OXYCONTIN [Concomitant]
     Dosage: 10 MG, 2X/DAY
     Route: 048
     Dates: start: 20130319
  10. OXINORM (OXYCODONE HYDROCHLORIDE) [Concomitant]
     Indication: CANCER PAIN
     Dosage: 2.5 MG, AS NEEDED
     Dates: start: 20120910
  11. SOLYUGEN F [Concomitant]
     Dosage: 500 ML, UNK
     Route: 041
     Dates: start: 20130321, end: 20130325
  12. BLOPRESS [Concomitant]
     Indication: HYPERTENSION
     Dosage: 12 MG, 1X/DAY
     Dates: start: 20120912, end: 20130321
  13. BLOPRESS [Concomitant]
     Dosage: 4 MG/DAY
     Dates: start: 20130322

REACTIONS (8)
  - Cancer pain [Recovering/Resolving]
  - Decreased appetite [Not Recovered/Not Resolved]
  - Dehydration [Recovering/Resolving]
  - Renal impairment [Recovering/Resolving]
  - Blood pressure decreased [Unknown]
  - Eye pain [Recovered/Resolved]
  - Somnolence [Recovered/Resolved]
  - Drug ineffective [Unknown]
